FAERS Safety Report 4763137-3 (Version None)
Quarter: 2005Q3

REPORT INFORMATION
  Report Type: 
  Country: None (occurrence: None)
  Receive Date: 20050826
  Receipt Date: 20041201
  Transmission Date: 20060218
  Serious: Yes (Other)
  Sender: FDA-Public Use
  Company Number: USA-2004-0015461

PATIENT
  Age: 42 Year
  Sex: Female
  Weight: 45.4 kg

DRUGS (4)
  1. OXYCONTIN [Suspect]
     Indication: PAIN
     Dosage: 10 MG, ORAL
     Route: 048
  2. SKELAXIN [Concomitant]
  3. LIBRAX [Concomitant]
  4. ATARAX [Concomitant]

REACTIONS (14)
  - ANXIETY [None]
  - ASTIGMATISM [None]
  - BALANCE DISORDER [None]
  - DEPRESSION [None]
  - DRUG DEPENDENCE [None]
  - DRUG WITHDRAWAL SYNDROME [None]
  - FEAR [None]
  - INJURY [None]
  - MYOPIA [None]
  - PAIN [None]
  - REFRACTION DISORDER [None]
  - TENDERNESS [None]
  - VERTIGO [None]
  - VISION BLURRED [None]
